FAERS Safety Report 15398414 (Version 2)
Quarter: 2019Q1

REPORT INFORMATION
  Report Type: Spontaneous
  Country: FR (occurrence: FR)
  Receive Date: 20180918
  Receipt Date: 20190308
  Transmission Date: 20190417
  Serious: Yes (Life-Threatening, Hospitalization)
  Sender: FDA-Public Use
  Company Number: FR-MYLANLABS-2018M1068213

PATIENT
  Age: 12 Year
  Sex: Male
  Weight: 32 kg

DRUGS (6)
  1. ETOPOSIDE. [Suspect]
     Active Substance: ETOPOSIDE
     Indication: STEM CELL TRANSPLANT
     Dosage: 500 MG/M2, QD
     Route: 042
     Dates: start: 20180302, end: 20180304
  2. ONDANSETRON [Concomitant]
     Active Substance: ONDANSETRON
     Indication: NAUSEA
     Dosage: 12 MG, QD
     Route: 042
     Dates: start: 20180305
  3. THIOTEPA. [Suspect]
     Active Substance: THIOTEPA
     Indication: STEM CELL TRANSPLANT
     Dosage: 300 MG/M2, UNK
     Route: 042
     Dates: start: 20180302, end: 20180304
  4. URSOLVAN-200 [Concomitant]
     Active Substance: URSODIOL
     Indication: CHOLELITHIASIS
     Dosage: 400 MG, QD
     Dates: start: 20180302
  5. MINIRINMELT [Concomitant]
     Active Substance: DESMOPRESSIN ACETATE
     Indication: DIABETES INSIPIDUS
     Dosage: 60 ?G, QD
     Route: 047
     Dates: start: 20180302
  6. HYDROXYZINE [Concomitant]
     Active Substance: HYDROXYZINE HYDROCHLORIDE
     Indication: ANAESTHESIA
     Dosage: 1 MG/KG, QD
     Route: 042
     Dates: start: 20180305

REACTIONS (5)
  - Toxic skin eruption [Recovering/Resolving]
  - Palmar-plantar erythrodysaesthesia syndrome [Recovered/Resolved]
  - Melanoderma [Recovered/Resolved]
  - Myalgia [Recovering/Resolving]
  - Stomatitis [Recovered/Resolved]

NARRATIVE: CASE EVENT DATE: 20180308
